FAERS Safety Report 8322048-7 (Version None)
Quarter: 2012Q2

REPORT INFORMATION
  Report Type: 
  Country: None (occurrence: None)
  Receive Date: 20120430
  Receipt Date: 20120424
  Transmission Date: 20120825
  Serious: Yes (Hospitalization, Other)
  Sender: FDA-Public Use
  Company Number: CA-ROCHE-1062590

PATIENT
  Age: 16 Year
  Sex: Male
  Weight: 77.18 kg

DRUGS (1)
  1. TAMIFLU [Suspect]
     Indication: PRODUCT USED FOR UNKNOWN INDICATION
     Route: 048

REACTIONS (5)
  - CONFUSIONAL STATE [None]
  - DELUSION [None]
  - HYPERSOMNIA [None]
  - PARANOIA [None]
  - FEELING GUILTY [None]
